FAERS Safety Report 25237929 (Version 1)
Quarter: 2025Q2

REPORT INFORMATION
  Report Type: Spontaneous
  Country: ES (occurrence: ES)
  Receive Date: 20250425
  Receipt Date: 20250425
  Transmission Date: 20250717
  Serious: Yes (Death, Hospitalization, Other)
  Sender: AMGEN
  Company Number: ES-AMGEN-ESPSP2025078106

PATIENT

DRUGS (2)
  1. FILGRASTIM [Suspect]
     Active Substance: FILGRASTIM
     Indication: Prophylaxis
     Dosage: 300 MICROGRAM, QD (FROM DAY +7 UNTIL NEUTROPHIL ENGRAFTMENT)
     Route: 065
  2. CYCLOPHOSPHAMIDE [Suspect]
     Active Substance: CYCLOPHOSPHAMIDE
     Indication: Prophylaxis
     Route: 065

REACTIONS (26)
  - Acute graft versus host disease [Fatal]
  - Infection [Fatal]
  - Intensive care [Unknown]
  - Unevaluable event [Unknown]
  - Transplant failure [Unknown]
  - Engraftment syndrome [Recovered/Resolved]
  - Capillary leak syndrome [Recovered/Resolved]
  - Mucosal inflammation [Unknown]
  - Neutropenic colitis [Unknown]
  - Cytomegalovirus infection reactivation [Unknown]
  - Chronic graft versus host disease [Unknown]
  - Epstein-Barr virus infection reactivation [Unknown]
  - Viral haemorrhagic cystitis [Unknown]
  - Neoplasm recurrence [Unknown]
  - Thrombotic microangiopathy [Unknown]
  - Venoocclusive liver disease [Recovered/Resolved]
  - Haematological infection [Unknown]
  - Cytomegalovirus infection [Unknown]
  - Human herpesvirus 6 infection [Unknown]
  - Respiratory tract infection viral [Unknown]
  - Fungal infection [Unknown]
  - Bone pain [Unknown]
  - Staphylococcal infection [Unknown]
  - Escherichia infection [Unknown]
  - Klebsiella infection [Unknown]
  - Human herpesvirus 6 infection reactivation [Unknown]
